FAERS Safety Report 7828388-X (Version None)
Quarter: 2011Q4

REPORT INFORMATION
  Report Type: 
  Country: None (occurrence: None)
  Receive Date: 20111020
  Receipt Date: 20111018
  Transmission Date: 20120403
  Serious: Yes (Hospitalization)
  Sender: FDA-Public Use
  Company Number: US-PFIZER INC-2011250862

PATIENT
  Sex: Female
  Weight: 169 kg

DRUGS (12)
  1. ELAVIL [Concomitant]
     Dosage: 75 MG, 1X/DAY
  2. PREVACID [Concomitant]
     Dosage: 30 MG, AS NEEDED
  3. CYCLOBENZAPRINE [Concomitant]
     Dosage: 10 MG, 2X/DAY
  4. LUNESTA [Concomitant]
     Dosage: 3 MG, 1X/DAY
  5. CYMBALTA [Concomitant]
     Dosage: 60 MG, 1X/DAY
  6. MELOXICAM [Concomitant]
     Dosage: 15MG
  7. CARISOPRODOL [Concomitant]
     Dosage: 50 MG, 1X/DAY
  8. LYRICA [Suspect]
     Indication: FIBROMYALGIA
     Dosage: 75 MG, 2X/DAY
     Dates: end: 20110101
  9. LYRICA [Suspect]
     Dosage: 150 MG, 2X/DAY
     Dates: start: 20110101
  10. TRAMADOL [Concomitant]
     Dosage: 50MG
  11. RELPAX [Concomitant]
     Dosage: 40 MG, AS NEEDED
  12. LISINOPRIL AND HYDROCHLOROTHIAZIDE [Concomitant]
     Dosage: 20/12.5 MG, 1X/DAY

REACTIONS (2)
  - PAIN [None]
  - DRUG INEFFECTIVE [None]
